FAERS Safety Report 9303539 (Version 1)
Quarter: 2013Q2

REPORT INFORMATION
  Report Type: Spontaneous
  Country: US (occurrence: None)
  Receive Date: 20130516
  Receipt Date: 20130516
  Transmission Date: 20140414
  Serious: Yes (Other)
  Sender: FDA-Public Use
  Company Number: 1304-464

PATIENT
  Age: 74 Year
  Sex: Male

DRUGS (4)
  1. EYLEA [Suspect]
     Indication: AGE-RELATED MACULAR DEGENERATION
     Dosage: 1 IN 8 WK, INTRAVITREAL
     Dates: start: 20130301, end: 20130329
  2. LEXAPRO [Concomitant]
  3. LITHIUM (LITHIUM) UNKNOWN [Concomitant]
  4. AREDS PRESERVISION (VITEYES) [Concomitant]

REACTIONS (4)
  - Vision blurred [None]
  - Retinal haemorrhage [None]
  - Vitreal cells [None]
  - Anterior chamber flare [None]
